FAERS Safety Report 4556420-8 (Version None)
Quarter: 2005Q1

REPORT INFORMATION
  Report Type: 
  Country: None (occurrence: None)
  Receive Date: 20050114
  Receipt Date: 20041220
  Transmission Date: 20050727
  Serious: Yes (Hospitalization, Other)
  Sender: FDA-Public Use
  Company Number: USA041286864

PATIENT
  Sex: Female

DRUGS (3)
  1. ZYPREXA [Suspect]
  2. RISPERDAL [Concomitant]
  3. ZOLOFT [Concomitant]

REACTIONS (1)
  - WEIGHT INCREASED [None]
